FAERS Safety Report 7580744-3 (Version None)
Quarter: 2011Q2

REPORT INFORMATION
  Report Type: 
  Country: None (occurrence: None)
  Receive Date: 20110629
  Receipt Date: 20110623
  Transmission Date: 20111010
  Serious: Yes (Other)
  Sender: FDA-Public Use
  Company Number: US-PFIZER INC-2011141059

PATIENT
  Sex: Male
  Weight: 72.562 kg

DRUGS (1)
  1. LYRICA [Suspect]
     Indication: TENDONITIS
     Dosage: 75 MG, 2X/DAY
     Route: 048

REACTIONS (2)
  - EYE DISORDER [None]
  - RETINOPATHY [None]
